FAERS Safety Report 14298828 (Version 4)
Quarter: 2020Q3

REPORT INFORMATION
  Report Type: Spontaneous
  Country: US (occurrence: US)
  Receive Date: 20171218
  Receipt Date: 20200819
  Transmission Date: 20201102
  Serious: No
  Sender: FDA-Public Use
  Company Number: US-BIOGEN-2015BI033148

PATIENT
  Age: 57 Year
  Sex: Female

DRUGS (4)
  1. TECFIDERA [Suspect]
     Active Substance: DIMETHYL FUMARATE
     Indication: MULTIPLE SCLEROSIS
     Dosage: MAINTENANCE DOSE
     Route: 050
     Dates: start: 20150225
  2. IBUPROFEN. [Concomitant]
     Active Substance: IBUPROFEN
     Indication: ADVERSE EVENT
     Route: 050
  3. VITAMIN D3 [Concomitant]
     Active Substance: CHOLECALCIFEROL
     Indication: PRODUCT USED FOR UNKNOWN INDICATION
     Route: 050
  4. TECFIDERA [Suspect]
     Active Substance: DIMETHYL FUMARATE
     Dosage: MAINTENANCE DOSE
     Route: 050
     Dates: start: 20150813

REACTIONS (19)
  - Arthralgia [Not Recovered/Not Resolved]
  - Nerve injury [Not Recovered/Not Resolved]
  - Discomfort [Recovered/Resolved]
  - Hot flush [Unknown]
  - Temperature intolerance [Unknown]
  - Humidity intolerance [Unknown]
  - Gait disturbance [Recovered/Resolved]
  - White blood cell count decreased [Recovered/Resolved]
  - Multiple sclerosis [Not Recovered/Not Resolved]
  - Underdose [Recovered/Resolved]
  - Hyperchlorhydria [Unknown]
  - Liver function test decreased [Recovered/Resolved]
  - Memory impairment [Not Recovered/Not Resolved]
  - Laryngitis [Unknown]
  - Central nervous system lesion [Unknown]
  - White blood cell count increased [Unknown]
  - Skin burning sensation [Recovered/Resolved]
  - Headache [Unknown]
  - Nasopharyngitis [Recovered/Resolved]

NARRATIVE: CASE EVENT DATE: 20150225
